FAERS Safety Report 24351010 (Version 1)
Quarter: 2024Q3

REPORT INFORMATION
  Report Type: Report from Study
  Country: US (occurrence: US)
  Receive Date: 20240923
  Receipt Date: 20240923
  Transmission Date: 20241017
  Serious: No
  Sender: ROCHE
  Company Number: US-ROCHE-2977323

PATIENT
  Age: 75 Year
  Sex: Female

DRUGS (14)
  1. HERCEPTIN [Suspect]
     Active Substance: TRASTUZUMAB
     Indication: Oesophageal carcinoma
     Dosage: INFUSE 6MG/KG (284MG) INTRAVENOUSLY OVER 30-90 MIN, 150 MG VIAL INFUSION
     Route: 042
  2. HERCEPTIN [Suspect]
     Active Substance: TRASTUZUMAB
     Indication: Iron deficiency anaemia
     Dosage: 150 MG SOLUTIONS
     Route: 042
     Dates: start: 20201201
  3. HERCEPTIN [Suspect]
     Active Substance: TRASTUZUMAB
     Dosage: 150 MG SOLUTION
     Route: 042
     Dates: start: 20201201
  4. HERCEPTIN [Suspect]
     Active Substance: TRASTUZUMAB
     Dosage: INFUSE 300MG IV EVERY 14 DAYS.
     Route: 042
     Dates: start: 20220524
  5. HERCEPTIN [Suspect]
     Active Substance: TRASTUZUMAB
     Dosage: INFUSE 278MG INTRAVENOUSLY EVERY 14 DAY(S)
     Route: 042
  6. FLUOROURACIL\LEUCOVORIN CALCIUM\OXALIPLATIN [Concomitant]
     Active Substance: FLUOROURACIL\LEUCOVORIN CALCIUM\OXALIPLATIN
  7. ALBUTEROL [Concomitant]
     Active Substance: ALBUTEROL
  8. CODEINE [Concomitant]
     Active Substance: CODEINE
  9. LOSARTAN [Concomitant]
     Active Substance: LOSARTAN\LOSARTAN POTASSIUM
  10. LEVOTHYROXINE [Concomitant]
     Active Substance: LEVOTHYROXINE\LEVOTHYROXINE SODIUM
  11. FLOVENT [Concomitant]
     Active Substance: FLUTICASONE PROPIONATE
  12. BUPROPION [Concomitant]
     Active Substance: BUPROPION
  13. LOMOTIL [Concomitant]
     Active Substance: ATROPINE SULFATE\DIPHENOXYLATE HYDROCHLORIDE
  14. LOPERAMIDE [Concomitant]
     Active Substance: LOPERAMIDE

REACTIONS (2)
  - Off label use [Unknown]
  - No adverse event [Unknown]
